FAERS Safety Report 23396999 (Version 1)
Quarter: 2024Q1

REPORT INFORMATION
  Report Type: Report from Study
  Country: CA (occurrence: CA)
  Receive Date: 20240112
  Receipt Date: 20240112
  Transmission Date: 20240410
  Serious: Yes (Hospitalization, Other)
  Sender: FDA-Public Use
  Company Number: CA-002147023-NVSC2021CA222675

PATIENT
  Age: 69 Year
  Sex: Male

DRUGS (2)
  1. HYRIMOZ [Suspect]
     Active Substance: ADALIMUMAB-ADAZ
     Indication: Rheumatoid arthritis
     Dosage: 40 MG, ONCE/SINGLE (PRE FILLED PEN)
     Route: 058
     Dates: start: 20210806
  2. HYRIMOZ [Suspect]
     Active Substance: ADALIMUMAB-ADAZ
     Dosage: 40 MG, PRE FILLED PEN
     Route: 058
     Dates: start: 20231229

REACTIONS (5)
  - Spinal operation [Recovered/Resolved]
  - Cataract operation [Recovered/Resolved]
  - Malaise [Unknown]
  - Nausea [Unknown]
  - Aphonia [Unknown]

NARRATIVE: CASE EVENT DATE: 20210806
